FAERS Safety Report 6400412-0 (Version None)
Quarter: 2009Q4

REPORT INFORMATION
  Report Type: 
  Country: None (occurrence: None)
  Receive Date: 20091007
  Receipt Date: 20091007
  Transmission Date: 20100525
  Serious: Yes (Other)
  Sender: FDA-Public Use
  Company Number: None

PATIENT
  Age: 87 Year
  Sex: Female
  Weight: 59.4212 kg

DRUGS (1)
  1. ZYVOX [Suspect]
     Indication: UROSEPSIS
     Dosage: 600MG Q12H IV
     Route: 042
     Dates: start: 20090928, end: 20091001

REACTIONS (1)
  - PLATELET COUNT DECREASED [None]
